FAERS Safety Report 12757749 (Version 1)
Quarter: 2016Q3

REPORT INFORMATION
  Report Type: Report from Study
  Country: US (occurrence: US)
  Receive Date: 20160919
  Receipt Date: 20160919
  Transmission Date: 20161109
  Serious: Yes (Other)
  Sender: FDA-Public Use
  Company Number: US-AMGEN-USASL2016123888

PATIENT
  Age: 76 Year
  Sex: Male

DRUGS (1)
  1. REPATHA [Suspect]
     Active Substance: EVOLOCUMAB
     Indication: LIPIDS ABNORMAL
     Dosage: 280 MG, QMO
     Route: 065

REACTIONS (4)
  - Adverse event [Unknown]
  - Muscle spasms [Unknown]
  - Pneumonia [Unknown]
  - Arthralgia [Unknown]
